FAERS Safety Report 9470109 (Version 1)
Quarter: 2013Q3

REPORT INFORMATION
  Report Type: Spontaneous
  Country: US (occurrence: None)
  Receive Date: 20130820
  Receipt Date: 20130820
  Transmission Date: 20140515
  Serious: No
  Sender: FDA-Public Use
  Company Number: None

PATIENT
  Age: 27 Year
  Sex: Female

DRUGS (2)
  1. NEURONTIN [Suspect]
     Indication: EPILEPSY
  2. DEPAKOTE [Suspect]
     Indication: EPILEPSY

REACTIONS (2)
  - Rash generalised [None]
  - Drug ineffective [None]
